FAERS Safety Report 6381972-5 (Version None)
Quarter: 2009Q3

REPORT INFORMATION
  Report Type: 
  Country: None (occurrence: None)
  Receive Date: 20090930
  Receipt Date: 20090921
  Transmission Date: 20100115
  Serious: Yes (Other)
  Sender: FDA-Public Use
  Company Number: US-AMGEN-QUU359353

PATIENT
  Sex: Female
  Weight: 38.6 kg

DRUGS (3)
  1. ENBREL [Suspect]
     Indication: PSORIASIS
     Route: 058
     Dates: start: 20040902
  2. ENBREL [Suspect]
     Indication: PSORIATIC ARTHROPATHY
  3. UNSPECIFIED TOPICAL PRODUCT [Concomitant]
     Dates: start: 20080301

REACTIONS (6)
  - ALOPECIA [None]
  - CONTUSION [None]
  - DRUG INEFFECTIVE [None]
  - LARYNGEAL CANCER [None]
  - THROAT TIGHTNESS [None]
  - WEIGHT DECREASED [None]
